FAERS Safety Report 9401450 (Version 1)
Quarter: 2013Q3

REPORT INFORMATION
  Report Type: Spontaneous
  Country: US (occurrence: US)
  Receive Date: 20130716
  Receipt Date: 20130716
  Transmission Date: 20140515
  Serious: No
  Sender: FDA-Public Use
  Company Number: US-009507513-1307USA000169

PATIENT
  Age: 40 Year
  Sex: Female
  Weight: 61.22 kg

DRUGS (5)
  1. NUVARING [Suspect]
     Indication: CONTRACEPTION
     Dosage: UNK
     Route: 067
     Dates: start: 1998, end: 20130626
  2. FLUOXETINE [Concomitant]
  3. ADDERALL TABLETS [Concomitant]
  4. TRAZODONE HYDROCHLORIDE [Concomitant]
  5. LAMOTRIGINE [Concomitant]

REACTIONS (1)
  - Menorrhagia [Not Recovered/Not Resolved]
